FAERS Safety Report 11071635 (Version 1)
Quarter: 2015Q2

REPORT INFORMATION
  Report Type: Spontaneous
  Country: US (occurrence: None)
  Receive Date: 20150424
  Receipt Date: 20150424
  Transmission Date: 20150821
  Serious: Yes (Other)
  Sender: FDA-Public Use
  Company Number: USW201504-000098

PATIENT
  Age: 54 Year
  Sex: Male

DRUGS (1)
  1. APOKYN [Suspect]
     Active Substance: APOMORPHINE HYDROCHLORIDE
     Indication: PARKINSON^S DISEASE
     Dosage: 0.3, 0-4 TIMES A DAY, SUBCUTANEOUS
     Route: 058
     Dates: start: 201410

REACTIONS (2)
  - Musculoskeletal pain [None]
  - Cerebrovascular accident [None]

NARRATIVE: CASE EVENT DATE: 20150325
